FAERS Safety Report 7216330-4 (Version None)
Quarter: 2011Q1

REPORT INFORMATION
  Report Type: 
  Country: None (occurrence: None)
  Receive Date: 20110107
  Receipt Date: 20110105
  Transmission Date: 20110831
  Serious: Yes (Other)
  Sender: FDA-Public Use
  Company Number: US-AMGEN-USASP2010011091

PATIENT

DRUGS (1)
  1. NPLATE [Suspect]
     Indication: IDIOPATHIC THROMBOCYTOPENIC PURPURA
     Dosage: 8 A?G/KG, UNK
     Route: 058
     Dates: start: 20100407, end: 20100901

REACTIONS (2)
  - MYELODYSPLASTIC SYNDROME [None]
  - MYELOPROLIFERATIVE DISORDER [None]
